FAERS Safety Report 9145779 (Version 1)
Quarter: 2013Q1

REPORT INFORMATION
  Report Type: Report from Study
  Country: NZ (occurrence: NZ)
  Receive Date: 20130307
  Receipt Date: 20130307
  Transmission Date: 20140127
  Serious: Yes (Hospitalization, Other)
  Sender: FDA-Public Use
  Company Number: PHHY2013NZ001723

PATIENT
  Sex: Male

DRUGS (2)
  1. CLOZARIL [Suspect]
     Dosage: UNK
     Dates: start: 20111114
  2. CLOZARIL [Suspect]

REACTIONS (3)
  - Malaise [Unknown]
  - Psychotic disorder [Unknown]
  - Anosognosia [Unknown]
